FAERS Safety Report 17305451 (Version 2)
Quarter: 2020Q1

REPORT INFORMATION
  Report Type: Spontaneous
  Country: FR (occurrence: FR)
  Receive Date: 20200123
  Receipt Date: 20200217
  Transmission Date: 20200409
  Serious: Yes (Other)
  Sender: FDA-Public Use
  Company Number: FR-PFIZER INC-2020027349

PATIENT
  Age: 36 Year
  Sex: Male

DRUGS (1)
  1. XANAX [Suspect]
     Active Substance: ALPRAZOLAM
     Indication: ANXIETY
     Dosage: 3 DF, DAILY (1 TABLET IN THE MORNING AND 2 TABLETS IN THE EVENING)
     Dates: start: 2003

REACTIONS (2)
  - Diabetes mellitus [Not Recovered/Not Resolved]
  - Papilloedema [Unknown]

NARRATIVE: CASE EVENT DATE: 2018
